FAERS Safety Report 17703851 (Version 1)
Quarter: 2020Q2

REPORT INFORMATION
  Report Type: Spontaneous
  Country: US (occurrence: US)
  Receive Date: 20200423
  Receipt Date: 20200423
  Transmission Date: 20200714
  Serious: Yes (Hospitalization)
  Sender: FDA-Public Use
  Company Number: None

PATIENT
  Age: 55 Year
  Sex: Male

DRUGS (18)
  1. PREDNISONE 10MG [Concomitant]
     Active Substance: PREDNISONE
  2. HUMIRA [Suspect]
     Active Substance: ADALIMUMAB
     Indication: RHEUMATOID ARTHRITIS
  3. VITAMIN D 1000 IU [Concomitant]
  4. MELOXICAM 15MG [Concomitant]
     Active Substance: MELOXICAM
  5. GARLIC 1000 [Concomitant]
  6. CITALOPRAM [Concomitant]
     Active Substance: CITALOPRAM HYDROBROMIDE
  7. CALCIUM/D 600MG [Concomitant]
  8. SPIRONOLACTONE 100MG [Concomitant]
     Active Substance: SPIRONOLACTONE
  9. MIRALAX POWDER PACKS [Concomitant]
  10. FOLIC ACID 1MG [Concomitant]
     Active Substance: FOLIC ACID
  11. METHADONE [Concomitant]
     Active Substance: METHADONE HYDROCHLORIDE
  12. JANUMET [Concomitant]
     Active Substance: METFORMIN HYDROCHLORIDE\SITAGLIPTIN PHOSPHATE
  13. MUCINEX-D 60/600MG [Concomitant]
  14. GABAPENTIN 100MG [Concomitant]
     Active Substance: GABAPENTIN
  15. ATORVASTATIN 10MG [Concomitant]
     Active Substance: ATORVASTATIN
  16. TRAMADOL 50MG [Concomitant]
     Active Substance: TRAMADOL
  17. MODAFINIL 100MG [Concomitant]
     Active Substance: MODAFINIL
  18. ALBUTEROL HFA [Concomitant]
     Active Substance: ALBUTEROL SULFATE

REACTIONS (1)
  - Deep vein thrombosis [None]

NARRATIVE: CASE EVENT DATE: 20200421
